FAERS Safety Report 6416836-1 (Version None)
Quarter: 2009Q4

REPORT INFORMATION
  Report Type: 
  Country: None (occurrence: None)
  Receive Date: 20091023
  Receipt Date: 20091015
  Transmission Date: 20100525
  Serious: Yes (Other)
  Sender: FDA-Public Use
  Company Number: ADR44452009

PATIENT
  Sex: Male

DRUGS (2)
  1. SERTRALINE HCL [Suspect]
  2. CLOZARIL [Concomitant]

REACTIONS (2)
  - ANTIPSYCHOTIC DRUG LEVEL INCREASED [None]
  - TACHYCARDIA [None]
